FAERS Safety Report 5194662-1 (Version None)
Quarter: 2006Q4

REPORT INFORMATION
  Report Type: 
  Country: None (occurrence: None)
  Receive Date: 20061229
  Receipt Date: 20061218
  Transmission Date: 20070319
  Serious: Yes (Other)
  Sender: FDA-Public Use
  Company Number: DE-JNJFOC-20061204548

PATIENT
  Sex: Female
  Weight: 42.2 kg

DRUGS (1)
  1. CONCERTA [Suspect]
     Indication: ATTENTION DEFICIT/HYPERACTIVITY DISORDER
     Route: 048

REACTIONS (4)
  - DEPRESSION [None]
  - NERVOUSNESS [None]
  - PERFORMANCE FEAR [None]
  - PSYCHIATRIC SYMPTOM [None]
